FAERS Safety Report 9519247 (Version 1)
Quarter: 2013Q1

REPORT INFORMATION
  Report Type: Spontaneous
  Country: US (occurrence: None)
  Receive Date: 20130305
  Receipt Date: 20130305
  Transmission Date: 20140127
  Serious: Yes (Other)
  Sender: FDA-Public Use
  Company Number: 163-21880-12103479

PATIENT
  Age: 69 Year
  Sex: Male
  Weight: 75.3 kg

DRUGS (13)
  1. REVLIMID [Suspect]
     Indication: PLASMA CELL MYELOMA
     Dosage: 21 IN 28 D
     Route: 048
     Dates: start: 20110309
  2. ACTOS (PIOGLITAZONE) [Concomitant]
  3. ASPIRIN (ACETYLSALICYLIC ACID) [Concomitant]
  4. CALCIUM +D (OS-CAL) [Concomitant]
  5. DEXAMETHASONE (DEXAMETHASONE) [Concomitant]
  6. FINASTERIDE (FINASTERIDE) [Concomitant]
  7. FLOMAX [Concomitant]
  8. FOLIC ACID (FOLIC ACID) [Concomitant]
  9. GLIPIZIDE (GLIPIZIDE) [Concomitant]
  10. JANTOVEN (WARFARIN SODIUM) [Concomitant]
  11. METFORMIN (METFORMIN) [Concomitant]
  12. TYLENOL PM (TYLENOL PM) [Concomitant]
  13. VITAMIN B12 (CYANOCOBALAMIN) [Concomitant]

REACTIONS (1)
  - Agitation [None]
